FAERS Safety Report 8874423 (Version 1)
Quarter: 2012Q4

REPORT INFORMATION
  Report Type: 
  Country: US (occurrence: US)
  Receive Date: 20121023
  Receipt Date: 20121023
  Transmission Date: 20130627
  Serious: No
  Sender: FDA-Public Use
  Company Number: US-VERTEX PHARMACEUTICAL INC.-2012-023236

PATIENT
  Age: 55 Year
  Sex: Male
  Weight: 131 kg

DRUGS (12)
  1. VX-950 [Suspect]
     Indication: HEPATITIS C
     Dosage: 750 mg, tid
     Route: 048
  2. PEGASYS [Suspect]
     Indication: HEPATITIS C
  3. RIBAVIRIN [Suspect]
     Indication: HEPATITIS C
     Dosage: 200 mg, UNK
  4. LANTUS [Concomitant]
     Dosage: 100/mL
  5. HUMALOG [Concomitant]
     Dosage: 100/mL
  6. GABAPENTIN [Concomitant]
     Dosage: 100 mg, UNK
  7. CLOPIDOGREL [Concomitant]
     Dosage: 75 mg, UNK
  8. NABUMETONE [Concomitant]
     Dosage: 500 UNK, UNK
  9. TOPROL XL [Concomitant]
     Dosage: 25 UNK, UNK
  10. AMLODIPINE [Concomitant]
     Dosage: 5 mg, UNK
  11. BENAZEPRIL [Concomitant]
     Dosage: 20 mg, UNK
  12. CYMBALTA [Concomitant]
     Dosage: 30 mg, UNK

REACTIONS (5)
  - Halo vision [Unknown]
  - Photophobia [Unknown]
  - Somnolence [Unknown]
  - Nasopharyngitis [Unknown]
  - Fatigue [Unknown]
